FAERS Safety Report 7225698-4 (Version None)
Quarter: 2011Q1

REPORT INFORMATION
  Report Type: 
  Country: None (occurrence: None)
  Receive Date: 20110113
  Receipt Date: 20110107
  Transmission Date: 20110831
  Serious: Yes (Hospitalization)
  Sender: FDA-Public Use
  Company Number: US-GENZYME-CERZ-1001756

PATIENT
  Age: 3 Year
  Sex: Female

DRUGS (2)
  1. CEREZYME [Suspect]
     Dosage: 400 MG, QW
     Route: 042
     Dates: start: 20090801
  2. CEREZYME [Suspect]
     Indication: GAUCHER'S DISEASE
     Dosage: 800 MG, Q2W
     Route: 042

REACTIONS (1)
  - HOSPITALISATION [None]
